FAERS Safety Report 24103369 (Version 1)
Quarter: 2024Q3

REPORT INFORMATION
  Report Type: Spontaneous
  Country: IT (occurrence: IT)
  Receive Date: 20240717
  Receipt Date: 20240717
  Transmission Date: 20241017
  Serious: Yes (Other)
  Sender: AUROBINDO
  Company Number: IT-MINISAL02-994082

PATIENT
  Age: 83 Year
  Sex: Female

DRUGS (1)
  1. AMIODARONE [Suspect]
     Active Substance: AMIODARONE
     Indication: Product used for unknown indication
     Dosage: CARICO DA 300 MG EV IN DATA 14/06/2024, POI PER OS 150 MG(LOAD OF 300 MG IV ON 06/14/2024, THEN 150
     Route: 065
     Dates: start: 20240614, end: 20240630

REACTIONS (1)
  - Drug-induced liver injury [Recovering/Resolving]

NARRATIVE: CASE EVENT DATE: 20240617
